FAERS Safety Report 13930747 (Version 9)
Quarter: 2019Q2

REPORT INFORMATION
  Report Type: Spontaneous
  Country: US (occurrence: US)
  Receive Date: 20170901
  Receipt Date: 20190506
  Transmission Date: 20190711
  Serious: Yes (Hospitalization)
  Sender: FDA-Public Use
  Company Number: US-ACTELION-A-US2017-158775

PATIENT
  Age: 27 Year
  Sex: Male
  Weight: 74.83 kg

DRUGS (6)
  1. VELETRI [Suspect]
     Active Substance: EPOPROSTENOL
     Indication: PULMONARY ARTERIAL HYPERTENSION
     Dosage: 51 NG/KG, PER MIN
     Route: 042
  2. VELETRI [Suspect]
     Active Substance: EPOPROSTENOL
     Dosage: 53 NG/KG, PER MIN
     Route: 042
  3. OPSUMIT [Suspect]
     Active Substance: MACITENTAN
     Indication: PULMONARY ARTERIAL HYPERTENSION
     Dosage: 10 MG, QD
     Route: 048
  4. VELETRI [Suspect]
     Active Substance: EPOPROSTENOL
     Dosage: 45.5 NG/KG, PER MIN
     Route: 042
  5. ADCIRCA [Concomitant]
     Active Substance: TADALAFIL
  6. WARFARIN [Concomitant]
     Active Substance: WARFARIN

REACTIONS (10)
  - Abdominal pain [Unknown]
  - Pain in extremity [Unknown]
  - Catheter site irritation [Unknown]
  - Pyrexia [Unknown]
  - Infection [Unknown]
  - Pigmentation disorder [Unknown]
  - Catheter management [Unknown]
  - Catheter site erythema [Unknown]
  - Pain in jaw [Unknown]
  - Staphylococcal infection [Unknown]

NARRATIVE: CASE EVENT DATE: 201802
